FAERS Safety Report 8613014-2 (Version None)
Quarter: 2012Q3

REPORT INFORMATION
  Report Type: 
  Country: None (occurrence: None)
  Receive Date: 20120822
  Receipt Date: 20120817
  Transmission Date: 20120928
  Serious: Yes (Death)
  Sender: FDA-Public Use
  Company Number: US-GILEAD-2012-0059284

PATIENT
  Sex: Female

DRUGS (3)
  1. LETAIRIS [Suspect]
     Indication: NEUROFIBROMATOSIS
  2. LETAIRIS [Suspect]
     Indication: PULMONARY HYPERTENSION
     Dosage: 10 MG, UNK
     Route: 048
     Dates: start: 20120203, end: 20120703
  3. LETAIRIS [Suspect]
     Indication: UNEVALUABLE EVENT

REACTIONS (2)
  - DYSPNOEA [None]
  - RIGHT VENTRICULAR FAILURE [None]
